FAERS Safety Report 15221441 (Version 2)
Quarter: 2018Q3

REPORT INFORMATION
  Report Type: Spontaneous
  Country: US (occurrence: US)
  Receive Date: 20180731
  Receipt Date: 20180904
  Transmission Date: 20181010
  Serious: No
  Sender: FDA-Public Use
  Company Number: US-BAUSCH-BL-2018-019855

PATIENT
  Age: 76 Year
  Sex: Male
  Weight: 82 kg

DRUGS (2)
  1. FLUOROURACIL 5% [Suspect]
     Active Substance: FLUOROURACIL
     Route: 061
     Dates: start: 20180709, end: 20180712
  2. FLUOROURACIL 5% [Suspect]
     Active Substance: FLUOROURACIL
     Indication: SKIN CANCER
     Route: 061
     Dates: start: 20180109

REACTIONS (3)
  - Application site erythema [Recovering/Resolving]
  - Expired product administered [Recovered/Resolved]
  - Pruritus [Recovering/Resolving]

NARRATIVE: CASE EVENT DATE: 20180709
